FAERS Safety Report 6419679-8 (Version None)
Quarter: 2009Q4

REPORT INFORMATION
  Report Type: 
  Country: None (occurrence: None)
  Receive Date: 20091029
  Receipt Date: 20091027
  Transmission Date: 20100525
  Serious: Yes (Hospitalization)
  Sender: FDA-Public Use
  Company Number: A0813869A

PATIENT
  Age: 64 Year
  Sex: Female

DRUGS (1)
  1. AVANDIA [Suspect]
     Dosage: 4MG PER DAY
     Route: 048
     Dates: end: 20040301

REACTIONS (6)
  - CEREBROVASCULAR ACCIDENT [None]
  - HEART INJURY [None]
  - MACULAR OEDEMA [None]
  - MONOPLEGIA [None]
  - MOVEMENT DISORDER [None]
  - MYOCARDIAL INFARCTION [None]
